FAERS Safety Report 22607753 (Version 1)
Quarter: 2023Q2

REPORT INFORMATION
  Report Type: Report from Study
  Country: CA (occurrence: CA)
  Receive Date: 20230616
  Receipt Date: 20230616
  Transmission Date: 20230721
  Serious: Yes (Other)
  Sender: FDA-Public Use
  Company Number: CA-ABBVIE-22K-028-4378280-00

PATIENT
  Sex: Female

DRUGS (1)
  1. HUMIRA [Suspect]
     Active Substance: ADALIMUMAB
     Indication: Rheumatoid arthritis
     Dosage: FORM STRENGTH: 40 MG
     Route: 058
     Dates: start: 20130601

REACTIONS (11)
  - Joint arthroplasty [Unknown]
  - Rheumatoid arthritis [Recovering/Resolving]
  - Chest discomfort [Unknown]
  - Pain [Unknown]
  - Migraine [Unknown]
  - Erythema [Not Recovered/Not Resolved]
  - Discomfort [Unknown]
  - Knee arthroplasty [Unknown]
  - Joint effusion [Unknown]
  - Headache [Unknown]
  - Chest pain [Not Recovered/Not Resolved]

NARRATIVE: CASE EVENT DATE: 20220101
